FAERS Safety Report 5179721-1 (Version None)
Quarter: 2006Q4

REPORT INFORMATION
  Report Type: 
  Country: None (occurrence: None)
  Receive Date: 20061211
  Receipt Date: 20061129
  Transmission Date: 20070319
  Serious: Yes (Other)
  Sender: FDA-Public Use
  Company Number: 2006147355

PATIENT
  Age: 40 Year
  Sex: Male
  Weight: 124.7392 kg

DRUGS (3)
  1. CHANTIX [Suspect]
     Indication: SMOKING CESSATION THERAPY
     Dosage: (0.5 MG)
     Dates: start: 20061116, end: 20061123
  2. VITAMINS [Concomitant]
  3. CONCERTA [Concomitant]

REACTIONS (8)
  - ABDOMINAL DISTENSION [None]
  - CONSTIPATION [None]
  - DYSGEUSIA [None]
  - FAECALOMA [None]
  - FLATULENCE [None]
  - GASTROINTESTINAL HAEMORRHAGE [None]
  - HAEMATOCHEZIA [None]
  - NAUSEA [None]
